FAERS Safety Report 19855964 (Version 1)
Quarter: 2021Q3

REPORT INFORMATION
  Report Type: Report from Study
  Country: US (occurrence: US)
  Receive Date: 20210920
  Receipt Date: 20210920
  Transmission Date: 20211014
  Serious: Yes (Hospitalization, Other)
  Sender: FDA-Public Use
  Company Number: US-TAKEDA-US202030090

PATIENT
  Age: 67 Year
  Sex: Male

DRUGS (8)
  1. TEDUGLUTIDE [Suspect]
     Active Substance: TEDUGLUTIDE
     Indication: SHORT-BOWEL SYNDROME
     Dosage: 2.5 MILLIGRAM, QD
     Route: 058
     Dates: start: 20181231
  2. TEDUGLUTIDE [Suspect]
     Active Substance: TEDUGLUTIDE
     Indication: SHORT-BOWEL SYNDROME
     Dosage: 2.5 MILLIGRAM, QD
     Route: 058
     Dates: start: 20181231
  3. TEDUGLUTIDE [Suspect]
     Active Substance: TEDUGLUTIDE
     Indication: HYPOMAGNESAEMIA
     Dosage: 2.5 MILLIGRAM, QD
     Route: 058
     Dates: start: 20200816
  4. TEDUGLUTIDE [Suspect]
     Active Substance: TEDUGLUTIDE
     Indication: SHORT-BOWEL SYNDROME
     Dosage: 2.5 MILLIGRAM, QD
     Route: 058
     Dates: start: 20181231
  5. TEDUGLUTIDE [Suspect]
     Active Substance: TEDUGLUTIDE
     Indication: HYPOMAGNESAEMIA
     Dosage: 2.5 MILLIGRAM, QD
     Route: 058
     Dates: start: 20200816
  6. TEDUGLUTIDE [Suspect]
     Active Substance: TEDUGLUTIDE
     Indication: HYPOMAGNESAEMIA
     Dosage: 2.5 MILLIGRAM, QD
     Route: 058
     Dates: start: 20200816
  7. TEDUGLUTIDE [Suspect]
     Active Substance: TEDUGLUTIDE
     Indication: HYPOMAGNESAEMIA
     Dosage: 2.5 MILLIGRAM, QD
     Route: 058
     Dates: start: 20200816
  8. TEDUGLUTIDE [Suspect]
     Active Substance: TEDUGLUTIDE
     Indication: SHORT-BOWEL SYNDROME
     Dosage: 2.5 MILLIGRAM, QD
     Route: 058
     Dates: start: 20181231

REACTIONS (2)
  - Nephrolithiasis [Unknown]
  - Product dose omission issue [Unknown]

NARRATIVE: CASE EVENT DATE: 20200816
